FAERS Safety Report 4454445-4 (Version None)
Quarter: 2004Q3

REPORT INFORMATION
  Report Type: 
  Country: None (occurrence: None)
  Receive Date: 20040917
  Receipt Date: 20040917
  Transmission Date: 20050211
  Serious: No
  Sender: FDA-Public Use
  Company Number: None

PATIENT
  Sex: Male
  Weight: 100 kg

DRUGS (6)
  1. METHYLPHYENIDATE HCL [Suspect]
     Indication: ATTENTION DEFICIT/HYPERACTIVITY DISORDER
     Dosage: 20MG QID ORAL
     Route: 048
     Dates: start: 20040622, end: 20040910
  2. HYDROCHLOROTHIAZIDE [Concomitant]
  3. ETODOLAC [Concomitant]
  4. WELLBUTRIN [Concomitant]
  5. LISINOPRIL [Concomitant]
  6. ACIPHEX [Concomitant]

REACTIONS (2)
  - BLOOD PRESSURE INCREASED [None]
  - CONDITION AGGRAVATED [None]
